FAERS Safety Report 7837400-3 (Version None)
Quarter: 2011Q4

REPORT INFORMATION
  Report Type: 
  Country: None (occurrence: None)
  Receive Date: 20111024
  Receipt Date: 20110913
  Transmission Date: 20120403
  Serious: No
  Sender: FDA-Public Use
  Company Number: US-ABBOTT-11P-163-0855038-00

PATIENT
  Sex: Female
  Weight: 70.37 kg

DRUGS (1)
  1. LUPRON DEPOT [Suspect]
     Indication: ENDOMETRIOSIS
     Dosage: 1 MONTH
     Dates: start: 20110825

REACTIONS (5)
  - ENDOMETRIOSIS [None]
  - VAGINAL DISCHARGE [None]
  - PAIN IN EXTREMITY [None]
  - ABDOMINAL PAIN [None]
  - FEELING ABNORMAL [None]
